FAERS Safety Report 24767375 (Version 1)
Quarter: 2024Q4

REPORT INFORMATION
  Report Type: Spontaneous
  Country: US (occurrence: US)
  Receive Date: 20241223
  Receipt Date: 20241223
  Transmission Date: 20250114
  Serious: Yes (Hospitalization)
  Sender: TEVA
  Company Number: US-TEVA-VS-3277572

PATIENT
  Age: 39 Year
  Sex: Female

DRUGS (14)
  1. PREDNISONE [Suspect]
     Active Substance: PREDNISONE
     Indication: Product used for unknown indication
     Dosage: EVERY OTHER DAY
     Route: 065
  2. LUPKYNIS [Concomitant]
     Active Substance: VOCLOSPORIN
     Indication: Lupus nephritis
     Route: 048
     Dates: start: 20230403, end: 202307
  3. LUPKYNIS [Concomitant]
     Active Substance: VOCLOSPORIN
     Indication: Lupus nephritis
     Route: 048
     Dates: start: 202307
  4. LUPKYNIS [Concomitant]
     Active Substance: VOCLOSPORIN
     Indication: Lupus nephritis
     Route: 048
  5. LUPKYNIS [Concomitant]
     Active Substance: VOCLOSPORIN
     Indication: Lupus nephritis
     Route: 048
  6. LUPKYNIS [Concomitant]
     Active Substance: VOCLOSPORIN
     Indication: Lupus nephritis
     Route: 048
  7. LUPKYNIS [Concomitant]
     Active Substance: VOCLOSPORIN
     Indication: Lupus nephritis
     Route: 048
  8. LUPKYNIS [Concomitant]
     Active Substance: VOCLOSPORIN
     Indication: Lupus nephritis
     Route: 048
  9. LUPKYNIS [Concomitant]
     Active Substance: VOCLOSPORIN
     Indication: Lupus nephritis
     Route: 048
  10. LUPKYNIS [Concomitant]
     Active Substance: VOCLOSPORIN
     Indication: Lupus nephritis
     Route: 048
     Dates: start: 202307
  11. LUPKYNIS [Concomitant]
     Active Substance: VOCLOSPORIN
     Indication: Lupus nephritis
     Route: 048
     Dates: start: 20230406
  12. PLAQUENIL [Concomitant]
     Active Substance: HYDROXYCHLOROQUINE SULFATE
     Indication: Product used for unknown indication
  13. MYCOPHENOLATE MOFETIL [Concomitant]
     Active Substance: MYCOPHENOLATE MOFETIL
     Indication: Product used for unknown indication
  14. CELLCEPT [Concomitant]
     Active Substance: MYCOPHENOLATE MOFETIL
     Indication: Product used for unknown indication

REACTIONS (2)
  - Weight increased [Unknown]
  - Drug ineffective [Unknown]
